FAERS Safety Report 16310960 (Version 1)
Quarter: 2019Q2

REPORT INFORMATION
  Report Type: Spontaneous
  Country: US (occurrence: US)
  Receive Date: 20190514
  Receipt Date: 20190514
  Transmission Date: 20190711
  Serious: Yes (Other)
  Sender: FDA-Public Use
  Company Number: US-PURDUE-USA-2019-0147134

PATIENT
  Sex: Female

DRUGS (2)
  1. HYDROCODONE BITARTRATE AND ACETAMINOPHEN [Suspect]
     Active Substance: ACETAMINOPHEN\HYDROCODONE BITARTRATE
     Indication: NECK PAIN
     Dosage: 10/ 500, TID
     Route: 048
     Dates: end: 2015
  2. ALPRAZOLAM. [Suspect]
     Active Substance: ALPRAZOLAM
     Indication: PRODUCT USED FOR UNKNOWN INDICATION
     Dosage: 1 MG, TID
     Route: 048

REACTIONS (7)
  - Panic attack [Unknown]
  - Anxiety [Unknown]
  - Road traffic accident [Unknown]
  - Surgery [Unknown]
  - Drug dependence [Unknown]
  - Knee arthroplasty [Unknown]
  - Post-traumatic stress disorder [Unknown]

NARRATIVE: CASE EVENT DATE: 2011
